FAERS Safety Report 10053195 (Version 1)
Quarter: 2014Q2

REPORT INFORMATION
  Report Type: Spontaneous
  Country: US (occurrence: US)
  Receive Date: 20140402
  Receipt Date: 20140402
  Transmission Date: 20141212
  Serious: Yes (Death, Hospitalization)
  Sender: FDA-Public Use
  Company Number: US-GLAXOSMITHKLINE-A1066696A

PATIENT
  Age: 64 Year
  Sex: Male

DRUGS (14)
  1. PROMACTA [Suspect]
     Indication: PRODUCT USED FOR UNKNOWN INDICATION
     Route: 065
  2. VENTOLIN [Suspect]
     Indication: PRODUCT USED FOR UNKNOWN INDICATION
     Route: 065
  3. ACYCLOVIR [Concomitant]
  4. LEVOFLOXACIN [Concomitant]
  5. FLUCONAZOLE [Concomitant]
  6. DILTIAZEM [Concomitant]
  7. METOPROLOL [Concomitant]
  8. ADVAIR [Concomitant]
  9. COMPAZINE [Concomitant]
  10. FLONASE [Concomitant]
  11. ALBUTEROL [Concomitant]
  12. REMERON [Concomitant]
  13. ZYRTEC [Concomitant]
  14. CHEMOTHERAPY [Concomitant]

REACTIONS (6)
  - Sepsis [Fatal]
  - Device related infection [Unknown]
  - Bacterial infection [Unknown]
  - White blood cell disorder [Unknown]
  - Endotracheal intubation [Unknown]
  - Staphylococcal infection [Unknown]
